FAERS Safety Report 23265726 (Version 3)
Quarter: 2024Q2

REPORT INFORMATION
  Report Type: Spontaneous
  Country: US (occurrence: US)
  Receive Date: 20231206
  Receipt Date: 20240404
  Transmission Date: 20240715
  Serious: No
  Sender: FDA-Public Use
  Company Number: US-BRISTOL-MYERS SQUIBB COMPANY-2023-176130

PATIENT
  Age: 63 Year
  Sex: Female
  Weight: 67.59 kg

DRUGS (1)
  1. POMALYST [Suspect]
     Active Substance: POMALIDOMIDE
     Indication: Plasma cell myeloma
     Dosage: 3WEEKS ON 1WEEK OFF
     Route: 048
     Dates: start: 20230201

REACTIONS (5)
  - Dyspnoea [Recovering/Resolving]
  - Peripheral swelling [Recovering/Resolving]
  - Insurance issue [Unknown]
  - Therapy interrupted [Unknown]
  - Product prescribing issue [Unknown]
